FAERS Safety Report 20213965 (Version 1)
Quarter: 2021Q4

REPORT INFORMATION
  Report Type: Spontaneous
  Country: US (occurrence: None)
  Receive Date: 20211221
  Receipt Date: 20211221
  Transmission Date: 20220303
  Serious: Yes (Death)
  Sender: FDA-Public Use
  Company Number: None

PATIENT
  Age: 77 Year
  Sex: Female

DRUGS (1)
  1. POMALYST [Suspect]
     Active Substance: POMALIDOMIDE
     Indication: Plasma cell myeloma
     Dosage: FREQUENCY : DAILY;?
     Route: 048
     Dates: start: 20210122, end: 20211119

REACTIONS (10)
  - Nasopharyngitis [None]
  - Anxiety [None]
  - Cardiac failure congestive [None]
  - Atrial fibrillation [None]
  - Coagulopathy [None]
  - International normalised ratio increased [None]
  - Hypotension [None]
  - Respiratory failure [None]
  - Condition aggravated [None]
  - Therapy interrupted [None]

NARRATIVE: CASE EVENT DATE: 20211209
